FAERS Safety Report 21401213 (Version 1)
Quarter: 2022Q4

REPORT INFORMATION
  Report Type: Report from Study
  Country: US (occurrence: US)
  Receive Date: 20221003
  Receipt Date: 20221003
  Transmission Date: 20230113
  Serious: Yes (Hospitalization, Other)
  Sender: FDA-Public Use
  Company Number: US-RECORDATI-2022004205

PATIENT

DRUGS (3)
  1. ISTURISA [Suspect]
     Active Substance: OSILODROSTAT PHOSPHATE
     Indication: Product used for unknown indication
     Dosage: 1MG IN THE MORNING 1MG IN THE EVENING
     Route: 048
     Dates: start: 2022, end: 2022
  2. ISTURISA [Suspect]
     Active Substance: OSILODROSTAT PHOSPHATE
     Dosage: 2MG IN THE MORNING AND 2MG IN THE EVENING
     Route: 048
     Dates: start: 2022, end: 2022
  3. ISTURISA [Suspect]
     Active Substance: OSILODROSTAT PHOSPHATE
     Dosage: 3MG IN THE MORNING AND 3MG IN THE EVENING
     Route: 048
     Dates: start: 2022, end: 20220831

REACTIONS (3)
  - Loss of consciousness [Recovered/Resolved]
  - Blood potassium decreased [Unknown]
  - Off label use [Recovered/Resolved]

NARRATIVE: CASE EVENT DATE: 20220101
